FAERS Safety Report 16418244 (Version 1)
Quarter: 2019Q2

REPORT INFORMATION
  Report Type: Spontaneous
  Country: CA (occurrence: CA)
  Receive Date: 20190612
  Receipt Date: 20190612
  Transmission Date: 20190711
  Serious: Yes (Life-Threatening, Hospitalization, Other)
  Sender: FDA-Public Use
  Company Number: CA-AUROBINDO-AUR-APL-2019-032045

PATIENT

DRUGS (5)
  1. CLOZARIL [Suspect]
     Active Substance: CLOZAPINE
     Dosage: 500 MILLIGRAM, ONCE A DAY
     Route: 048
  2. FLUOXETINE [Suspect]
     Active Substance: FLUOXETINE HYDROCHLORIDE
     Indication: PRODUCT USED FOR UNKNOWN INDICATION
     Dosage: 30 MILLIGRAM
     Route: 065
  3. CLOZARIL [Suspect]
     Active Substance: CLOZAPINE
     Indication: SCHIZOPHRENIA
     Dosage: 250 MILLIGRAM, ONCE A DAY
     Route: 048
  4. THEOPHYLLINE [Concomitant]
     Active Substance: THEOPHYLLINE ANHYDROUS
     Indication: PRODUCT USED FOR UNKNOWN INDICATION
     Dosage: 1 DOSAGE FORM
     Route: 065
  5. CLOZARIL [Suspect]
     Active Substance: CLOZAPINE
     Indication: CATATONIA
     Dosage: 300 MILLIGRAM, ONCE A DAY
     Route: 048

REACTIONS (11)
  - Antipsychotic drug level increased [Recovered/Resolved]
  - Unresponsive to stimuli [Recovered/Resolved]
  - Drug interaction [Recovered/Resolved]
  - Pneumonia [Recovered/Resolved]
  - Depressed level of consciousness [Recovered/Resolved]
  - Myoclonus [Recovered/Resolved]
  - Hypotension [Recovered/Resolved]
  - Retching [Recovered/Resolved]
  - Sedation [Recovered/Resolved]
  - Cough [Recovered/Resolved]
  - Respiratory distress [Recovered/Resolved]
